FAERS Safety Report 7987732 (Version 3)
Quarter: 2012Q4

REPORT INFORMATION
  Report Type: 
  Country: DE (occurrence: DE)
  Receive Date: 20110613
  Receipt Date: 20121107
  Transmission Date: 20130627
  Serious: Yes (Other)
  Sender: FDA-Public Use
  Company Number: PHHY2011DE08788

PATIENT
  Age: 46 None
  Sex: Female
  Weight: 76 kg

DRUGS (2)
  1. EXTAVIA [Suspect]
     Indication: MULTIPLE SCLEROSIS
     Dosage: 250 ug, QOD
     Route: 058
     Dates: start: 2004
  2. ALCOHOL [Suspect]
     Indication: INFECTION PROPHYLAXIS
     Route: 003
     Dates: start: 2004, end: 20121001

REACTIONS (10)
  - Breast cancer [Unknown]
  - Soft tissue infection [Recovering/Resolving]
  - Injection site reaction [Not Recovered/Not Resolved]
  - Injection site inflammation [Recovering/Resolving]
  - Injection site pain [Not Recovered/Not Resolved]
  - Injection site erythema [Not Recovered/Not Resolved]
  - Injection site warmth [Not Recovered/Not Resolved]
  - Injection site discolouration [Not Recovered/Not Resolved]
  - Swelling [Unknown]
  - Pruritus [Unknown]
